FAERS Safety Report 24169994 (Version 1)
Quarter: 2024Q3

REPORT INFORMATION
  Report Type: Spontaneous
  Country: IN (occurrence: IN)
  Receive Date: 20240803
  Receipt Date: 20240803
  Transmission Date: 20241017
  Serious: Yes (Other)
  Sender: MACLEODS
  Company Number: IN-MACLEODS PHARMA-MAC2024048529

PATIENT

DRUGS (3)
  1. PYRAZINAMIDE [Suspect]
     Active Substance: PYRAZINAMIDE
     Indication: Lymph node tuberculosis
     Route: 065
  2. ISONIAZID [Suspect]
     Active Substance: ISONIAZID
     Indication: Lymph node tuberculosis
     Route: 065
  3. RIFAMPIN [Suspect]
     Active Substance: RIFAMPIN
     Indication: Lymph node tuberculosis
     Route: 065

REACTIONS (1)
  - Haemophagocytic lymphohistiocytosis [Recovered/Resolved]
